FAERS Safety Report 13143141 (Version 2)
Quarter: 2017Q1

REPORT INFORMATION
  Report Type: Spontaneous
  Country: IT (occurrence: IT)
  Receive Date: 20170123
  Receipt Date: 20170131
  Transmission Date: 20170428
  Serious: Yes (Other)
  Sender: FDA-Public Use
  Company Number: IT-AMGEN-ITASP2017010180

PATIENT
  Age: 53 Year
  Sex: Female

DRUGS (5)
  1. FOLINA [Concomitant]
     Active Substance: FOLIC ACID
     Dosage: 5 MG, UNK
     Route: 048
  2. OKI [Concomitant]
     Active Substance: KETOPROFEN LYSINE
     Dosage: 80 MG, UNK
     Route: 048
  3. ESOMEPRAZOLE [Concomitant]
     Active Substance: ESOMEPRAZOLE
     Dosage: 20 MG, UNK
     Route: 048
  4. MEDROL [Concomitant]
     Active Substance: METHYLPREDNISOLONE
     Dosage: 16 MG, UNK
     Route: 048
  5. ENBREL [Suspect]
     Active Substance: ETANERCEPT
     Indication: RHEUMATOID ARTHRITIS
     Dosage: 50 MG, WEEKLY
     Route: 058
     Dates: start: 20081212, end: 20100412

REACTIONS (6)
  - Pyrexia [Recovered/Resolved]
  - Bronchitis [Recovered/Resolved]
  - Sputum purulent [Recovered/Resolved]
  - Productive cough [Recovered/Resolved]
  - Tremor [Recovered/Resolved]
  - Cough [Recovered/Resolved]

NARRATIVE: CASE EVENT DATE: 20090107
